FAERS Safety Report 24139238 (Version 1)
Quarter: 2024Q3

REPORT INFORMATION
  Report Type: Report from Study
  Country: CA (occurrence: CA)
  Receive Date: 20240726
  Receipt Date: 20240726
  Transmission Date: 20241016
  Serious: Yes (Other)
  Sender: CSL BEHRING
  Company Number: CA-BEH-2024174711

PATIENT
  Age: 40 Year
  Sex: Female
  Weight: 94 kg

DRUGS (2)
  1. HIZENTRA [Suspect]
     Active Substance: HUMAN IMMUNOGLOBULIN G
     Indication: Secondary immunodeficiency
     Dosage: 7 G, QW
     Route: 065
     Dates: start: 20240514, end: 20240710
  2. GONAL-F [Concomitant]
     Active Substance: FOLLITROPIN
     Dosage: UNK
     Dates: start: 202405

REACTIONS (3)
  - Abortion spontaneous [Unknown]
  - In vitro fertilisation [Unknown]
  - Maternal exposure during pregnancy [Unknown]

NARRATIVE: CASE EVENT DATE: 20240626
